FAERS Safety Report 6243134-1 (Version None)
Quarter: 2009Q2

REPORT INFORMATION
  Report Type: 
  Country: None (occurrence: None)
  Receive Date: 20090622
  Receipt Date: 20090604
  Transmission Date: 20091009
  Serious: Yes (Other)
  Sender: FDA-Public Use
  Company Number: BVT-000139

PATIENT
  Age: 65 Year
  Sex: Female

DRUGS (1)
  1. PALIFERMIN (PALIFERMIN) [Suspect]

REACTIONS (1)
  - TOLOSA-HUNT SYNDROME [None]
